FAERS Safety Report 10721061 (Version 2)
Quarter: 2015Q3

REPORT INFORMATION
  Report Type: Spontaneous
  Country: US (occurrence: US)
  Receive Date: 20150119
  Receipt Date: 20150722
  Transmission Date: 20151125
  Serious: No
  Sender: FDA-Public Use
  Company Number: US-UNITED THERAPEUTICS-UNT-2014-008067

PATIENT
  Age: 76 Year
  Sex: Female
  Weight: 65.76 kg

DRUGS (9)
  1. REMODULIN [Suspect]
     Active Substance: TREPROSTINIL
     Dosage: 0.06 ?G/KG/MIN, CONTINUING
     Route: 058
  2. ASPIRIN                            /00002701/ [Concomitant]
     Active Substance: ASPIRIN
     Indication: PRODUCT USED FOR UNKNOWN INDICATION
  3. REMODULIN [Suspect]
     Active Substance: TREPROSTINIL
     Dosage: 0.060 ?G/KG/MIN, CONTINUING
     Route: 058
     Dates: start: 20130726
  4. LETAIRIS [Suspect]
     Active Substance: AMBRISENTAN
     Indication: PRODUCT USED FOR UNKNOWN INDICATION
     Dosage: 5 MG, QD
     Dates: start: 20110921
  5. LETAIRIS [Suspect]
     Active Substance: AMBRISENTAN
     Dosage: 10 MG, QD
     Route: 048
     Dates: start: 201401
  6. REVATIO [Concomitant]
     Active Substance: SILDENAFIL CITRATE
     Indication: PRODUCT USED FOR UNKNOWN INDICATION
  7. REMODULIN [Suspect]
     Active Substance: TREPROSTINIL
     Dosage: 0.06 ?G/KG/MIN, CONTINUING
     Route: 058
     Dates: start: 20130825
  8. REMODULIN [Suspect]
     Active Substance: TREPROSTINIL
     Dosage: 0.060 ?G/KG/MIN, CONTINUING
     Route: 058
     Dates: start: 20130726
  9. REMODULIN [Suspect]
     Active Substance: TREPROSTINIL
     Indication: PULMONARY ARTERIAL HYPERTENSION
     Dosage: 0.060 ?G/KG/MIN, CONTINUING
     Route: 058
     Dates: start: 20130725

REACTIONS (16)
  - Infusion site induration [Unknown]
  - Infusion site pain [Unknown]
  - Infusion site pruritus [Not Recovered/Not Resolved]
  - Infusion site reaction [Unknown]
  - Malaise [Unknown]
  - Infusion site oedema [Unknown]
  - Device connection issue [Unknown]
  - Pain in extremity [Unknown]
  - Infusion site scar [Unknown]
  - Infusion site rash [Not Recovered/Not Resolved]
  - Infusion site erythema [Not Recovered/Not Resolved]
  - Erythema [Unknown]
  - Device dislocation [Recovered/Resolved]
  - Drug dose omission [Recovered/Resolved]
  - Sinusitis [Unknown]
  - Dermatitis contact [Unknown]

NARRATIVE: CASE EVENT DATE: 201504
